FAERS Safety Report 8592191-6 (Version None)
Quarter: 2012Q3

REPORT INFORMATION
  Report Type: 
  Country: None (occurrence: None)
  Receive Date: 20120814
  Receipt Date: 20120810
  Transmission Date: 20120928
  Serious: Yes (Hospitalization)
  Sender: FDA-Public Use
  Company Number: IT-BAYER-2012-081589

PATIENT
  Age: 88 Year
  Sex: Female

DRUGS (1)
  1. ASPIRIN [Suspect]
     Indication: CARDIAC DISORDER
     Dosage: 100 MG, QD
     Route: 048
     Dates: start: 20090101, end: 20120601

REACTIONS (5)
  - FAECES DISCOLOURED [None]
  - SOMNOLENCE [None]
  - ANAEMIA [None]
  - DISORIENTATION [None]
  - ASTHENIA [None]
